FAERS Safety Report 5848650-X (Version None)
Quarter: 2008Q3

REPORT INFORMATION
  Report Type: 
  Country: None (occurrence: None)
  Receive Date: 20080814
  Receipt Date: 20080804
  Transmission Date: 20090109
  Serious: Yes (Other)
  Sender: FDA-Public Use
  Company Number: 1000000386

PATIENT
  Age: 40 Year
  Sex: Female

DRUGS (3)
  1. LEXAPRO [Suspect]
     Dosage: 10 MG (10 MG, 1 IN 1 D), ORAL, ORAL
     Route: 048
     Dates: start: 20030201, end: 20080101
  2. LEXAPRO [Suspect]
     Dosage: 10 MG (10 MG, 1 IN 1 D), ORAL, ORAL
     Route: 048
     Dates: start: 20080101, end: 20080515
  3. STUDY DRUG NOS [Suspect]
     Dates: start: 20070709

REACTIONS (2)
  - GALLBLADDER POLYP [None]
  - HEPATIC CYST [None]
